FAERS Safety Report 17793711 (Version 2)
Quarter: 2020Q4

REPORT INFORMATION
  Report Type: Report from Study
  Country: AU (occurrence: AU)
  Receive Date: 20200515
  Receipt Date: 20201027
  Transmission Date: 20210113
  Serious: Yes (Hospitalization)
  Sender: FDA-Public Use
  Company Number: AU-SA-2019SA201049

PATIENT

DRUGS (40)
  1. BORTEZOMIB. [Suspect]
     Active Substance: BORTEZOMIB
     Dosage: 1.3 MG/M2, OTHER
     Route: 058
     Dates: start: 20190212, end: 20190212
  2. AVAMYS [Concomitant]
     Active Substance: FLUTICASONE FUROATE
     Dosage: UNK
     Route: 048
     Dates: start: 2015
  3. COLOXYL WITH SENNA [Concomitant]
     Active Substance: DOCUSATE SODIUM\SENNOSIDES A AND B
     Dosage: UNK
     Route: 048
     Dates: start: 20190226
  4. ZOMETA [Concomitant]
     Active Substance: ZOLEDRONIC ACID
     Indication: PROPHYLAXIS
     Dosage: UNK
     Route: 042
     Dates: start: 20190402
  5. AMITRIPTYLINE [Concomitant]
     Active Substance: AMITRIPTYLINE
     Dosage: UNK
     Route: 048
     Dates: start: 20190710
  6. PARACETAMOL [Concomitant]
     Active Substance: ACETAMINOPHEN
     Indication: PROPHYLAXIS
     Dosage: TOTAL DAILY DOSE: 1000 MG
     Route: 048
     Dates: start: 20190716, end: 20190716
  7. LENALIDOMIDE [Suspect]
     Active Substance: LENALIDOMIDE
     Indication: PLASMA CELL MYELOMA
     Dosage: 25 MG, QD
     Route: 048
     Dates: start: 20190702, end: 20190715
  8. VITAMIN C [Concomitant]
     Active Substance: ASCORBIC ACID
     Indication: PROPHYLAXIS
     Dosage: UNK
     Route: 048
     Dates: start: 1975
  9. VITAMIN B5 [CALCIUM PANTOTHENATE] [Concomitant]
     Indication: PROPHYLAXIS
     Dosage: UNK
     Route: 048
     Dates: start: 1998
  10. VITAMIN B6 [Concomitant]
     Active Substance: PYRIDOXINE HYDROCHLORIDE
     Indication: PROPHYLAXIS
     Dosage: UNK
     Route: 048
     Dates: start: 1998
  11. CIPROFLOXACIN. [Concomitant]
     Active Substance: CIPROFLOXACIN
     Dosage: UNK
     Route: 048
     Dates: start: 20190213
  12. APIXABAN [Concomitant]
     Active Substance: APIXABAN
     Indication: PROPHYLAXIS
     Dosage: UNK
     Route: 048
     Dates: start: 20190423, end: 20190815
  13. ISATUXIMAB [Suspect]
     Active Substance: ISATUXIMAB
     Indication: PLASMA CELL MYELOMA
     Dosage: 10 MG/KG, QOW
     Route: 042
     Dates: start: 20190716, end: 20190716
  14. MAGNESIUM OROTATE. [Concomitant]
     Active Substance: MAGNESIUM OROTATE
     Indication: PROPHYLAXIS
     Dosage: UNK
     Route: 048
     Dates: start: 2015
  15. CURCUMIN [Concomitant]
     Active Substance: CURCUMIN
     Indication: PROPHYLAXIS
     Dosage: UNK
     Route: 048
     Dates: start: 2017
  16. CIPROFLOXACIN. [Concomitant]
     Active Substance: CIPROFLOXACIN
     Indication: PROPHYLAXIS
     Dosage: UNK
     Route: 048
     Dates: start: 20190407
  17. CALCIUM AND VITAMIN D [Concomitant]
     Active Substance: CALCIUM\VITAMIN D
     Indication: PROPHYLAXIS
     Dosage: VITAMIN D (500IU) + CALCIUM (600MG)
     Route: 048
     Dates: start: 20190215
  18. MOVICOL [Concomitant]
     Active Substance: POLYETHYLENE GLYCOL 3350\POTASSIUM CHLORIDE\SODIUM BICARBONATE\SODIUM CHLORIDE
     Dosage: UNK
     Route: 048
     Dates: start: 20190226
  19. ESCITALOPRAM [Concomitant]
     Active Substance: ESCITALOPRAM OXALATE
     Dosage: UNK
     Route: 048
     Dates: start: 20190704, end: 20190709
  20. CHLORVESCENT [POTASSIUM BICARBONATE;POTASSIUM CARBONATE;POTASSIUM CHLO [Concomitant]
     Indication: PROPHYLAXIS
     Dosage: UNK
     Route: 048
     Dates: start: 20190221
  21. METOCLOPRAMIDE. [Concomitant]
     Active Substance: METOCLOPRAMIDE
     Dosage: UNK
     Route: 048
     Dates: start: 20190611
  22. CLARITHROMYCIN. [Concomitant]
     Active Substance: CLARITHROMYCIN
     Dosage: UNK
     Route: 048
     Dates: start: 20190718, end: 20190721
  23. LENALIDOMIDE [Suspect]
     Active Substance: LENALIDOMIDE
     Dosage: 25 MG, QD
     Route: 048
     Dates: start: 20190212, end: 20190218
  24. TEMAZEPAM. [Concomitant]
     Active Substance: TEMAZEPAM
     Dosage: UNK
     Route: 048
     Dates: start: 20190222
  25. SLOW K [Concomitant]
     Active Substance: POTASSIUM CHLORIDE
     Indication: PROPHYLAXIS
     Dosage: UNK
     Route: 048
     Dates: start: 20190702
  26. OSELTAMIVIR [Concomitant]
     Active Substance: OSELTAMIVIR
     Dosage: UNK
     Route: 048
     Dates: start: 20190722
  27. BORTEZOMIB. [Suspect]
     Active Substance: BORTEZOMIB
     Indication: PLASMA CELL MYELOMA
     Dosage: 1.3 MG/M2, OTHER
     Route: 058
  28. DOXYLAMINE SUCCINATE. [Concomitant]
     Active Substance: DOXYLAMINE SUCCINATE
     Indication: PROPHYLAXIS
     Dosage: UNK
     Route: 048
     Dates: start: 2017
  29. VALACICLOVIR [Concomitant]
     Active Substance: VALACYCLOVIR HYDROCHLORIDE
     Indication: PROPHYLAXIS
     Dosage: UNK
     Route: 048
     Dates: start: 20190213
  30. LACTULOSE. [Concomitant]
     Active Substance: LACTULOSE
     Dosage: UNK
     Route: 048
     Dates: start: 20190226
  31. TAZOBACTAM SODIUM AND PIPERACILLIN SODIUM [Concomitant]
     Active Substance: PIPERACILLIN SODIUM\TAZOBACTAM SODIUM
     Dosage: UNK
     Route: 042
     Dates: start: 20190721, end: 20190722
  32. RANITIDINE. [Concomitant]
     Active Substance: RANITIDINE
     Indication: PROPHYLAXIS
     Dosage: TOTAL DAILY DOSE: 50 MG
     Route: 042
     Dates: start: 20190716, end: 20190716
  33. DEXAMETHASONE. [Suspect]
     Active Substance: DEXAMETHASONE
     Dosage: 20 MG, QW
     Route: 042
     Dates: start: 20190212, end: 20190212
  34. VITAMIN B12 [COBAMAMIDE] [Concomitant]
     Indication: PROPHYLAXIS
     Dosage: UNK
     Route: 048
     Dates: start: 1998
  35. ISATUXIMAB [Suspect]
     Active Substance: ISATUXIMAB
     Dosage: 10 MG/KG, QW
     Route: 042
     Dates: start: 20190212, end: 20190212
  36. DEXAMETHASONE. [Suspect]
     Active Substance: DEXAMETHASONE
     Indication: PLASMA CELL MYELOMA
     Dosage: 8 MG, QOW
     Route: 042
     Dates: start: 20190716, end: 20190716
  37. GINKO [GINKGO BILOBA] [Concomitant]
     Active Substance: GINKGO
     Indication: PROPHYLAXIS
     Dosage: UNK
     Route: 048
     Dates: start: 2008
  38. MELATONIN [Concomitant]
     Active Substance: MELATONIN
     Indication: PROPHYLAXIS
     Dosage: UNK
     Route: 048
     Dates: start: 2017
  39. PANTOPRAZOLE [Concomitant]
     Active Substance: PANTOPRAZOLE
     Dosage: UNK
     Route: 048
     Dates: start: 20190611
  40. AZITHROMYCIN ANHYDROUS. [Concomitant]
     Active Substance: AZITHROMYCIN ANHYDROUS
     Dosage: UNK
     Route: 042
     Dates: start: 20190721, end: 20190722

REACTIONS (3)
  - Pulmonary embolism [Recovered/Resolved]
  - Febrile neutropenia [Recovered/Resolved]
  - Pulmonary embolism [Recovered/Resolved]

NARRATIVE: CASE EVENT DATE: 20190721
